FAERS Safety Report 8264487-9 (Version None)
Quarter: 2012Q2

REPORT INFORMATION
  Report Type: 
  Country: None (occurrence: None)
  Receive Date: 20120406
  Receipt Date: 20120327
  Transmission Date: 20120825
  Serious: Yes (Other)
  Sender: FDA-Public Use
  Company Number: US-SANOFI-AVENTIS-2012SA021346

PATIENT
  Age: 8 Year
  Sex: Male

DRUGS (1)
  1. ALLEGRA [Suspect]
     Indication: SEASONAL ALLERGY
     Dosage: DOSE:1 TEASPOON(S)
     Route: 048

REACTIONS (2)
  - TYPE 1 DIABETES MELLITUS [None]
  - NASAL CONGESTION [None]
